FAERS Safety Report 23248234 (Version 2)
Quarter: 2023Q4

REPORT INFORMATION
  Report Type: Other
  Country: PL (occurrence: None)
  Receive Date: 20231130
  Receipt Date: 20231211
  Transmission Date: 20240110
  Serious: Yes (Other)
  Sender: FDA-Public Use
  Company Number: PL-ROCHE-3462870

PATIENT
  Age: 64 Year
  Sex: Female

DRUGS (1)
  1. TECENTRIQ [Suspect]
     Active Substance: ATEZOLIZUMAB
     Indication: Small cell lung cancer
     Route: 065
     Dates: start: 20220119

REACTIONS (7)
  - Pneumonia [Unknown]
  - Hyperthyroidism [Unknown]
  - Abdominal abscess [Unknown]
  - Hepatotoxicity [Unknown]
  - Skin disorder [Unknown]
  - Panniculitis [Unknown]
  - Dermatitis [Unknown]

NARRATIVE: CASE EVENT DATE: 20220412
